FAERS Safety Report 24747703 (Version 1)
Quarter: 2024Q4

REPORT INFORMATION
  Report Type: Report from Study
  Country: NL (occurrence: NL)
  Receive Date: 20241218
  Receipt Date: 20241218
  Transmission Date: 20250115
  Serious: Yes (Other)
  Sender: ABBVIE
  Company Number: NL-ABBVIE-6045930

PATIENT
  Age: 72 Year
  Sex: Female

DRUGS (9)
  1. CARBIDOPA\LEVODOPA [Suspect]
     Active Substance: CARBIDOPA\LEVODOPA
     Indication: Parkinson^s disease
     Route: 050
     Dates: start: 20171025
  2. CARBIDOPA\LEVODOPA [Suspect]
     Active Substance: CARBIDOPA\LEVODOPA
     Dosage: ED 3.80 ML, NIGHT CD: 1.3 ML/H, REMAINS AT 24
     Route: 050
     Dates: start: 20240806, end: 20240806
  3. CARBIDOPA\LEVODOPA [Suspect]
     Active Substance: CARBIDOPA\LEVODOPA
     Dosage: MD 5.7ML, CD 2.5ML/H, ED 3.80 ML, REMAINS AT 24
     Route: 050
     Dates: start: 20240806, end: 20240806
  4. CARBIDOPA\LEVODOPA [Suspect]
     Active Substance: CARBIDOPA\LEVODOPA
     Dosage: CD 2.3ML/H, REMAINS AT 24
     Route: 050
     Dates: start: 20240814, end: 20240814
  5. CARBIDOPA\LEVODOPA [Suspect]
     Active Substance: CARBIDOPA\LEVODOPA
     Dosage: MD 5.7ML, CD 2.3ML/H, ED 3.80 ML, REMAINS AT 24
     Route: 050
     Dates: start: 20241129, end: 20241129
  6. CARBIDOPA\LEVODOPA [Suspect]
     Active Substance: CARBIDOPA\LEVODOPA
     Dosage: MD: 4.7M, REMAINS AT 16
     Route: 050
     Dates: start: 20241211
  7. CARBIDOPA\LEVODOPA [Suspect]
     Active Substance: CARBIDOPA\LEVODOPA
     Dosage: CD 1.3ML/H, ED 3.80 ML, REMAINS AT 24
     Route: 050
     Dates: start: 20240829, end: 20240829
  8. SINEMET [Concomitant]
     Active Substance: CARBIDOPA\LEVODOPA
     Indication: Product used for unknown indication
     Dosage: 100/25
  9. MOVICOLON [Concomitant]
     Active Substance: POLYETHYLENE GLYCOL 3350\POTASSIUM CHLORIDE\SODIUM BICARBONATE\SODIUM CHLORIDE
     Indication: Abnormal faeces

REACTIONS (4)
  - Daydreaming [Not Recovered/Not Resolved]
  - Somnolence [Not Recovered/Not Resolved]
  - Mastication disorder [Not Recovered/Not Resolved]
  - Dystonia [Not Recovered/Not Resolved]
